FAERS Safety Report 5591447-9 (Version None)
Quarter: 2008Q1

REPORT INFORMATION
  Report Type: 
  Country: None (occurrence: None)
  Receive Date: 20080115
  Receipt Date: 20080107
  Transmission Date: 20080703
  Serious: Yes (Other)
  Sender: FDA-Public Use
  Company Number: US-PURDUE-USA_2008_0031005

PATIENT
  Age: 67 Year
  Sex: Female

DRUGS (17)
  1. OXYCONTIN [Suspect]
     Indication: PAIN
  2. LORTAB [Suspect]
     Indication: PAIN
  3. CLONAZEPAM [Suspect]
     Indication: ANXIETY
  4. METRONIDAZOLE [Suspect]
     Indication: DIVERTICULITIS
  5. PROMETHAZINE [Suspect]
     Indication: NAUSEA
  6. LOPERAMIDE HCL [Suspect]
     Indication: DIARRHOEA
  7. SKELAXIN [Concomitant]
     Indication: MUSCLE RELAXANT THERAPY
  8. ACETAMINOPHEN [Concomitant]
  9. PROZAC [Concomitant]
  10. SYNTHROID [Concomitant]
  11. ATENOLOL [Concomitant]
  12. SINGULAIR [Concomitant]
  13. RHINOCORT [Concomitant]
  14. NEXIUM [Concomitant]
  15. LASIX [Concomitant]
  16. BENICAR [Concomitant]
  17. UNKNOWN STUDY MEDICATION [Suspect]
     Indication: DRUG USE FOR UNKNOWN INDICATION
     Dates: start: 20061110

REACTIONS (8)
  - DIARRHOEA [None]
  - DIVERTICULITIS [None]
  - FALL [None]
  - NAUSEA [None]
  - ORAL INTAKE REDUCED [None]
  - PAIN [None]
  - SPINAL COMPRESSION FRACTURE [None]
  - VOMITING [None]
